FAERS Safety Report 17671827 (Version 3)
Quarter: 2020Q2

REPORT INFORMATION
  Report Type: Report from Study
  Country: US (occurrence: US)
  Receive Date: 20200415
  Receipt Date: 20200612
  Transmission Date: 20200713
  Serious: No
  Sender: FDA-Public Use
  Company Number: US-BAYER-2020-059475

PATIENT
  Age: 50 Year
  Sex: Male

DRUGS (12)
  1. BLINDED RIOCIGUAT (GUANYLATE CYCLASE STIMULATOR) [Suspect]
     Active Substance: RIOCIGUAT
     Indication: SICKLE CELL DISEASE
     Dosage: 1.5 MG, TID
     Route: 048
     Dates: start: 20200319, end: 20200331
  2. ASPIRIN (CARDIO) [Concomitant]
     Active Substance: ASPIRIN
     Dosage: UNK
     Dates: start: 20190708
  3. BLINDED RIOCIGUAT (GUANYLATE CYCLASE STIMULATOR) [Suspect]
     Active Substance: RIOCIGUAT
     Indication: SICKLE CELL DISEASE
     Dosage: 2 MG, TID
     Route: 048
     Dates: start: 20200416, end: 20200427
  4. BLINDED RIOCIGUAT (GUANYLATE CYCLASE STIMULATOR) [Suspect]
     Active Substance: RIOCIGUAT
     Indication: SICKLE CELL DISEASE
     Dosage: 2.5 MG, TID
     Route: 048
     Dates: start: 20200428
  5. ARANESP [Concomitant]
     Active Substance: DARBEPOETIN ALFA
     Dosage: UNK
     Dates: start: 20190815
  6. FOLIC ACID. [Concomitant]
     Active Substance: FOLIC ACID
     Dosage: UNK
     Dates: start: 20190528
  7. BLINDED RIOCIGUAT (GUANYLATE CYCLASE STIMULATOR) [Suspect]
     Active Substance: RIOCIGUAT
     Indication: SICKLE CELL DISEASE
     Dosage: 1 MG, TID
     Route: 048
     Dates: start: 20200304, end: 20200318
  8. BLINDED RIOCIGUAT (GUANYLATE CYCLASE STIMULATOR) [Suspect]
     Active Substance: RIOCIGUAT
     Indication: SICKLE CELL DISEASE
     Dosage: 2 MG, TID
     Route: 048
     Dates: start: 20200401, end: 20200406
  9. BLINDED RIOCIGUAT (GUANYLATE CYCLASE STIMULATOR) [Suspect]
     Active Substance: RIOCIGUAT
     Indication: SICKLE CELL DISEASE
     Dosage: 1.5 MG, TID
     Route: 048
     Dates: start: 20200407, end: 20200415
  10. MVI [VITAMINS NOS] [Concomitant]
     Dosage: UNK
     Dates: start: 20191216
  11. LEVOXYL [Concomitant]
     Active Substance: LEVOTHYROXINE SODIUM
     Dosage: UNK
     Dates: start: 20190423
  12. LOSARTAN POTASSIUM. [Concomitant]
     Active Substance: LOSARTAN POTASSIUM
     Dosage: UNK
     Dates: start: 20190423

REACTIONS (2)
  - Paraesthesia [Recovered/Resolved]
  - Angina pectoris [Recovered/Resolved]

NARRATIVE: CASE EVENT DATE: 20200404
